FAERS Safety Report 14789856 (Version 3)
Quarter: 2018Q4

REPORT INFORMATION
  Report Type: Spontaneous
  Country: US (occurrence: US)
  Receive Date: 20180423
  Receipt Date: 20181126
  Transmission Date: 20190204
  Serious: No
  Sender: FDA-Public Use
  Company Number: US-PFIZER INC-2018163899

PATIENT
  Age: 77 Year
  Sex: Female

DRUGS (2)
  1. ZOLOFT [Suspect]
     Active Substance: SERTRALINE HYDROCHLORIDE
     Dosage: UNK
  2. IOHEXOL [Suspect]
     Active Substance: IOHEXOL
     Dosage: UNK

REACTIONS (1)
  - Drug hypersensitivity [Unknown]
